FAERS Safety Report 16753396 (Version 2)
Quarter: 2019Q4

REPORT INFORMATION
  Report Type: Spontaneous
  Country: US (occurrence: US)
  Receive Date: 20190829
  Receipt Date: 20191004
  Transmission Date: 20200122
  Serious: Yes (Hospitalization, Other)
  Sender: FDA-Public Use
  Company Number: US-DRREDDYS-USA/USA/19/0113737

PATIENT
  Age: 57 Year
  Sex: Male

DRUGS (12)
  1. IFOSFAMIDE. [Suspect]
     Active Substance: IFOSFAMIDE
     Indication: DIFFUSE LARGE B-CELL LYMPHOMA
     Dosage: DAY 1-5 WITH MESNA (CYCLE 2 AND 4) (THE PATIENT UNDERWENT 4 ALTERNATING CYCLES OF R-CODOX-M/R-IVAC,
     Route: 042
  2. ETOPOSIDE. [Suspect]
     Active Substance: ETOPOSIDE
     Indication: DIFFUSE LARGE B-CELL LYMPHOMA
     Dosage: DAY 1-5 (THE PATIENT UNDERWENT 4 ALTERNATING CYCLES OF R-CODOX-M/R-IVAC, AS FOLLOWS:  R-CODOX-M (CYC
  3. VINCRISTINE [Suspect]
     Active Substance: VINCRISTINE
     Indication: DIFFUSE LARGE B-CELL LYMPHOMA
     Dosage: DAY 1-2  (CYCLE 1 AND 3) (THE PATIENT UNDERWENT 4 ALTERNATING CYCLES OF R-CODOX-M/R-IVAC, AS FOLLOWS
     Route: 042
  4. DOXORUBICIN HYDROCHLORIDE LIPOSOME INJECTION 20 MG/10 ML (2 MG/ML) AND [Suspect]
     Active Substance: DOXORUBICIN HYDROCHLORIDE
     Indication: DIFFUSE LARGE B-CELL LYMPHOMA
     Dosage: DAY 1 (CYCLE 1 AND 3), (THE PATIENT UNDERWENT 4 ALTERNATING CYCLES OF R-CODOX-M/R-IVAC, AS FOLLOWS:
     Route: 042
  5. RITUXIMAB. [Suspect]
     Active Substance: RITUXIMAB
     Indication: DIFFUSE LARGE B-CELL LYMPHOMA
     Dosage: DAY 1  (CYCLE 1 AND 3) (THE PATIENT UNDERWENT 4 ALTERNATING CYCLES OF R-CODOX-M/R-IVAC, AS FOLLOWS:
     Route: 042
  6. RITUXIMAB. [Suspect]
     Active Substance: RITUXIMAB
     Dosage: ON DAY 1 (CYCLE 2 AND 4) (THE PATIENT UNDERWENT 4 ALTERNATING CYCLES OF R-CODOX-M/R-IVAC, AS FOLLOWS
  7. MESNA. [Suspect]
     Active Substance: MESNA
     Indication: DIFFUSE LARGE B-CELL LYMPHOMA
     Dosage: DAY 1 TO 5 WITH MESNA (THE PATIENT UNDERWENT 4 ALTERNATING CYCLES OF R-CODOX-M/R-IVAC, AS FOLLOWS:
     Route: 042
  8. FOLINIC ACID [Suspect]
     Active Substance: LEUCOVORIN
     Indication: DIFFUSE LARGE B-CELL LYMPHOMA
     Dosage: ON DAY 8  (CYCLE 1 AND 3) (THE PATIENT UNDERWENT 4 ALTERNATING CYCLES OF R-CODOX-M/R-IVAC, AS FOLLOW
     Route: 042
  9. CYTARABINE. [Suspect]
     Active Substance: CYTARABINE
     Indication: DIFFUSE LARGE B-CELL LYMPHOMA
     Dosage: ON DAYS 1 AND 2 (TOTAL OF FOUR DOSES) (THE PATIENT UNDERWENT 4 ALTERNATING CYCLES OF R-CODOX-M/R-IVA
     Route: 042
  10. METHOTREXATE. [Suspect]
     Active Substance: METHOTREXATE
     Indication: DIFFUSE LARGE B-CELL LYMPHOMA
     Dosage: DAY 1-2  (CYCLE 1 AND 3) (THE PATIENT UNDERWENT 4 ALTERNATING CYCLES OF R-CODOX-M/R-IVAC, AS FOLLOWS
     Route: 042
  11. METHOTREXATE. [Suspect]
     Active Substance: METHOTREXATE
     Dosage: ON DAY 5 (THE PATIENT UNDERWENT 4 ALTERNATING CYCLES OF R-CODOX-M/R-IVAC, AS FOLLOWS:  R-CODOX-M (CY
     Route: 042
  12. CYCLOPHOSPHAMIDE. [Suspect]
     Active Substance: CYCLOPHOSPHAMIDE
     Indication: DIFFUSE LARGE B-CELL LYMPHOMA
     Dosage: DAY 1-4  (CYCLE 1 AND 3) (THE PATIENT UNDERWENT 4 ALTERNATING CYCLES OF R-CODOX-M/R-IVAC, AS FOLLOWS
     Route: 042

REACTIONS (7)
  - Febrile neutropenia [Unknown]
  - Anaemia [Unknown]
  - Colitis [Recovered/Resolved]
  - Thrombocytopenia [Unknown]
  - Transaminases increased [Recovered/Resolved]
  - Acute kidney injury [Recovered/Resolved]
  - Weight decreased [Unknown]
